FAERS Safety Report 13097672 (Version 1)
Quarter: 2017Q1

REPORT INFORMATION
  Report Type: Spontaneous
  Country: US (occurrence: US)
  Receive Date: 20170108
  Receipt Date: 20170108
  Transmission Date: 20170428
  Serious: No
  Sender: FDA-Public Use
  Company Number: None

PATIENT
  Age: 37 Year
  Sex: Female
  Weight: 74.25 kg

DRUGS (1)
  1. MIRENA [Suspect]
     Active Substance: LEVONORGESTREL
     Indication: MENORRHAGIA
     Dosage: ?          OTHER FREQUENCY:ONE IMPLANT/5YEARS;?
     Route: 067
     Dates: start: 20160617

REACTIONS (1)
  - Alopecia [None]

NARRATIVE: CASE EVENT DATE: 20160724
